FAERS Safety Report 6088182-X (Version None)
Quarter: 2009Q1

REPORT INFORMATION
  Report Type: 
  Country: None (occurrence: None)
  Receive Date: 20090224
  Receipt Date: 20090217
  Transmission Date: 20090719
  Serious: No
  Sender: FDA-Public Use
  Company Number: US-JNJFOC-20090204683

PATIENT
  Sex: Female
  Weight: 81.65 kg

DRUGS (5)
  1. DURAGESIC-100 [Suspect]
     Indication: PAIN
     Route: 062
  2. ACTIQ [Concomitant]
     Indication: PAIN
     Route: 048
  3. ELAVIL [Concomitant]
     Indication: DEPRESSION
     Route: 048
  4. HUMALOG [Concomitant]
     Indication: DIABETES MELLITUS
     Dosage: 40 UNITS
     Route: 058
  5. NEXIUM [Concomitant]
     Indication: GASTRIC DISORDER
     Route: 048

REACTIONS (4)
  - APPLICATION SITE REACTION [None]
  - INCORRECT DRUG ADMINISTRATION DURATION [None]
  - OSTEOARTHRITIS [None]
  - PAIN [None]
